FAERS Safety Report 7742095-3 (Version None)
Quarter: 2011Q3

REPORT INFORMATION
  Report Type: 
  Country: None (occurrence: None)
  Receive Date: 20110912
  Receipt Date: 20110901
  Transmission Date: 20111222
  Serious: Yes (Death, Hospitalization, Other)
  Sender: FDA-Public Use
  Company Number: PHHY2010DE16505

PATIENT
  Sex: Male
  Weight: 101 kg

DRUGS (12)
  1. DIURETICS [Concomitant]
     Indication: CARDIAC FAILURE
     Dosage: 10 MG, DAILY
     Dates: start: 20050101
  2. ASPIRIN [Concomitant]
     Indication: CORONARY ARTERY DISEASE
     Dosage: 250 MG, DAILY
     Route: 048
     Dates: start: 20050101
  3. INSULIN ACTRAPHANE [Concomitant]
     Indication: DIABETES MELLITUS
     Dosage: 80 IU, DAILY
     Route: 058
     Dates: start: 19940101
  4. MEGLUCON [Concomitant]
     Indication: DIABETES MELLITUS
     Dosage: 1500 MG, DAILY
     Route: 048
     Dates: start: 19940101
  5. MOXONIDINE [Concomitant]
     Indication: HYPERTENSION
     Dosage: 0.4 MG, DAILY
     Route: 048
     Dates: start: 20050101
  6. VOLTAREN [Suspect]
     Indication: OSTEOARTHRITIS
     Dosage: 280 MG, DAILY
     Route: 048
     Dates: start: 20100128, end: 20100208
  7. STATINE [Concomitant]
     Dosage: UNK UKN, UNK
  8. SPIRONOLACTONE [Concomitant]
     Indication: CARDIAC FAILURE
     Dosage: 100 MG, DAILY
     Route: 048
     Dates: start: 20090203
  9. BETA-ACETYLDIGOXIN [Concomitant]
     Indication: CARDIAC FAILURE
     Dosage: 0.2 MG, DAILY
     Route: 048
     Dates: start: 20050101
  10. ALLOPURINOL [Concomitant]
     Indication: HYPERURICAEMIA
     Dosage: 100 MG, DAILY
     Route: 048
     Dates: start: 20050101
  11. DIOVAN [Suspect]
     Indication: HYPERTENSION
     Dosage: 320 MG, DAILY
     Route: 048
     Dates: start: 20080522
  12. NITRENDIPINE [Concomitant]
     Indication: HYPERTENSION
     Dosage: 40 MG, DAILY
     Route: 048
     Dates: start: 20050101

REACTIONS (7)
  - DIABETES MELLITUS [None]
  - OSTEOARTHRITIS [None]
  - CARDIAC FAILURE [None]
  - BLOOD PRESSURE INCREASED [None]
  - RENAL FAILURE [None]
  - MULTI-ORGAN FAILURE [None]
  - TRANSIENT ISCHAEMIC ATTACK [None]
